FAERS Safety Report 6076548-3 (Version None)
Quarter: 2009Q1

REPORT INFORMATION
  Report Type: 
  Country: None (occurrence: None)
  Receive Date: 20090213
  Receipt Date: 20090209
  Transmission Date: 20090719
  Serious: Yes (Hospitalization)
  Sender: FDA-Public Use
  Company Number: AU-BRISTOL-MYERS SQUIBB COMPANY-14499545

PATIENT
  Age: 45 Year
  Sex: Female

DRUGS (1)
  1. NYSTATIN [Suspect]
     Indication: CANDIDIASIS
     Dates: start: 20070123, end: 20070124

REACTIONS (3)
  - DYSHIDROSIS [None]
  - ERYTHEMA [None]
  - OEDEMA PERIPHERAL [None]
